FAERS Safety Report 17053341 (Version 1)
Quarter: 2019Q4

REPORT INFORMATION
  Report Type: Spontaneous
  Country: US (occurrence: US)
  Receive Date: 20191120
  Receipt Date: 20191120
  Transmission Date: 20200122
  Serious: No
  Sender: FDA-Public Use
  Company Number: US-VERTEX PHARMACEUTICALS-2019-011217

PATIENT
  Age: 30 Year
  Sex: Female

DRUGS (25)
  1. VITAMIN E [Concomitant]
     Active Substance: .ALPHA.-TOCOPHEROL
  2. FLUTICASONE. [Concomitant]
     Active Substance: FLUTICASONE
  3. VITAMIN A [RETINOL] [Concomitant]
     Active Substance: RETINOL
  4. VITAMIN C [Concomitant]
     Active Substance: ASCORBIC ACID
  5. SYMDEKO [Suspect]
     Active Substance: IVACAFTOR\TEZACAFTOR
     Indication: BACTERIAL DISEASE CARRIER
  6. VITAMIN B2 [RIBOFLAVIN] [Concomitant]
  7. ALFALFA [MEDICAGO SATIVA] [Concomitant]
  8. LEVEMIR [Concomitant]
     Active Substance: INSULIN DETEMIR
  9. SODIUM CHLORIDE. [Concomitant]
     Active Substance: SODIUM CHLORIDE
  10. B COMPLEX [VITAMIN B COMPLEX] [Concomitant]
  11. ZINC. [Concomitant]
     Active Substance: ZINC
  12. ALBUTEROL [SALBUTAMOL] [Concomitant]
     Active Substance: ALBUTEROL
  13. NOVOLOG [Concomitant]
     Active Substance: INSULIN ASPART
  14. VITAMIN K [PHYTOMENADIONE] [Concomitant]
  15. SYMDEKO [Suspect]
     Active Substance: IVACAFTOR\TEZACAFTOR
     Indication: CYSTIC FIBROSIS
     Dosage: TEZACAFTOR 100MG/150 MG IVACAFTOR AM, 150MG IVACAFTO) PM
     Route: 048
     Dates: start: 201903
  16. OMEGA-3 [SALMO SALAR OIL] [Concomitant]
     Active Substance: ATLANTIC SALMON OIL
  17. CAYSTON [Concomitant]
     Active Substance: AZTREONAM
  18. PULMOZYME [Concomitant]
     Active Substance: DORNASE ALFA
  19. SYMBICORT [Concomitant]
     Active Substance: BUDESONIDE\FORMOTEROL FUMARATE DIHYDRATE
  20. VENTOLIN [Concomitant]
     Active Substance: ALBUTEROL SULFATE
  21. AZITHROMYCIN ANHYDROUS. [Concomitant]
     Active Substance: AZITHROMYCIN ANHYDROUS
  22. VITAMIN B12 [Concomitant]
     Active Substance: CYANOCOBALAMIN
  23. CREON [Concomitant]
     Active Substance: PANCRELIPASE AMYLASE\PANCRELIPASE LIPASE\PANCRELIPASE PROTEASE
  24. SCANDISHAKE MIX [Concomitant]
     Active Substance: DIETARY SUPPLEMENT
  25. TOBRAMYCIN. [Concomitant]
     Active Substance: TOBRAMYCIN

REACTIONS (1)
  - Motion sickness [Recovered/Resolved]

NARRATIVE: CASE EVENT DATE: 201905
